FAERS Safety Report 25744152 (Version 1)
Quarter: 2025Q3

REPORT INFORMATION
  Report Type: Spontaneous
  Country: US (occurrence: US)
  Receive Date: 20250831
  Receipt Date: 20250831
  Transmission Date: 20251021
  Serious: No
  Sender: VELOXIS PHARMACEUTICALS
  Company Number: US-VELOXIS PHARMACEUTICALS, INC.-2025-VEL-00015

PATIENT

DRUGS (2)
  1. ENVARSUS XR [Suspect]
     Active Substance: TACROLIMUS
     Indication: Product used for unknown indication
     Route: 065
  2. PROGRAF [Suspect]
     Active Substance: TACROLIMUS
     Indication: Product used for unknown indication
     Route: 065

REACTIONS (1)
  - Medication error [Unknown]
